FAERS Safety Report 8217620 (Version 3)
Quarter: 2012Q4

REPORT INFORMATION
  Report Type: 
  Country: US (occurrence: US)
  Receive Date: 20111101
  Receipt Date: 20121102
  Transmission Date: 20130627
  Serious: No
  Sender: FDA-Public Use
  Company Number: US-ABBOTT-10P-163-0689664-00

PATIENT
  Sex: Female

DRUGS (1)
  1. BIAXIN [Suspect]
     Indication: INFECTION
     Dosage: unknown

REACTIONS (2)
  - Hypersensitivity [Recovered/Resolved]
  - Migraine [Recovered/Resolved]
